FAERS Safety Report 6157016-7 (Version None)
Quarter: 2009Q2

REPORT INFORMATION
  Report Type: 
  Country: None (occurrence: None)
  Receive Date: 20090413
  Receipt Date: 20090402
  Transmission Date: 20091009
  Serious: Yes (Other)
  Sender: FDA-Public Use
  Company Number: GXKR2009GB04271

PATIENT
  Age: 64 Year
  Sex: Male
  Weight: 95.7 kg

DRUGS (7)
  1. OMEPRAZOLE [Suspect]
     Indication: DYSPEPSIA
     Dosage: ORAL
     Route: 048
     Dates: start: 20060101, end: 20080801
  2. ADALAT [Concomitant]
  3. ACETYLSALICYLIC ACID (ACETYLSALICYLIC ACID) [Concomitant]
  4. ATENOLOL [Concomitant]
  5. ATORVASTATIN CALCIUM [Concomitant]
  6. FUROSEMIDE [Concomitant]
  7. PERINDOPRIL ERBUMINE [Concomitant]

REACTIONS (1)
  - BLOOD MAGNESIUM DECREASED [None]
